FAERS Safety Report 19778906 (Version 1)
Quarter: 2021Q3

REPORT INFORMATION
  Report Type: Other
  Country: IN (occurrence: IN)
  Receive Date: 20210902
  Receipt Date: 20210902
  Transmission Date: 20211014
  Serious: Yes (Other)
  Sender: FDA-Public Use
  Company Number: IN-ROCHE-2897846

PATIENT

DRUGS (1)
  1. TOCILIZUMAB. [Suspect]
     Active Substance: TOCILIZUMAB
     Indication: COVID-19
     Dosage: UP TO A MAXIMUM OF 800MG IN TWO INFUSIONS, 24H APART
     Route: 042

REACTIONS (6)
  - Hepatitis [Unknown]
  - Off label use [Unknown]
  - Pneumonia [Unknown]
  - Transaminases increased [Unknown]
  - Bacteraemia [Unknown]
  - Fungal sepsis [Unknown]
